FAERS Safety Report 11048978 (Version 1)
Quarter: 2015Q2

REPORT INFORMATION
  Report Type: Spontaneous
  Country: US (occurrence: US)
  Receive Date: 20150420
  Receipt Date: 20150420
  Transmission Date: 20150821
  Serious: Yes (Other)
  Sender: FDA-Public Use
  Company Number: US-ELI_LILLY_AND_COMPANY-US201504002853

PATIENT
  Age: 31 Year
  Sex: Male
  Weight: 65.76 kg

DRUGS (2)
  1. GEMZAR [Suspect]
     Active Substance: GEMCITABINE HYDROCHLORIDE
     Indication: THYMOMA MALIGNANT RECURRENT
     Dosage: UNK
     Route: 065
     Dates: start: 20080428, end: 200906
  2. ALIMTA [Suspect]
     Active Substance: PEMETREXED DISODIUM
     Indication: THYMOMA MALIGNANT RECURRENT
     Dosage: UNK
     Route: 065
     Dates: start: 20101022, end: 20110112

REACTIONS (2)
  - Malignant neoplasm progression [Not Recovered/Not Resolved]
  - Malignant neoplasm progression [Not Recovered/Not Resolved]

NARRATIVE: CASE EVENT DATE: 200906
